FAERS Safety Report 7914363-3 (Version None)
Quarter: 2011Q4

REPORT INFORMATION
  Report Type: 
  Country: None (occurrence: None)
  Receive Date: 20111115
  Receipt Date: 20111107
  Transmission Date: 20120403
  Serious: Yes (Hospitalization, Other)
  Sender: FDA-Public Use
  Company Number: US-ELI_LILLY_AND_COMPANY-US201111003203

PATIENT
  Sex: Female

DRUGS (18)
  1. POTASSIUM [Concomitant]
     Dosage: UNK
  2. MULTI-VITAMINS [Concomitant]
     Dosage: UNK
  3. FISH OIL [Concomitant]
     Dosage: UNK
  4. DIGOXIN [Concomitant]
     Dosage: UNK
  5. ASCORBIC ACID [Concomitant]
     Dosage: UNK
  6. VITAMIN B COMPLEX CAP [Concomitant]
     Dosage: UNK
  7. CALCIUM [Concomitant]
     Dosage: UNK
  8. HUMALOG [Suspect]
     Indication: DIABETES MELLITUS
     Dosage: UNK, PRN
  9. PLAVIX [Concomitant]
     Dosage: UNK
  10. PROTONIX [Concomitant]
     Indication: GASTRIC DISORDER
     Dosage: UNK
  11. ASPIRIN [Concomitant]
     Dosage: 1 DF, QD
  12. LASIX [Concomitant]
     Dosage: UNK
  13. LANTUS [Concomitant]
     Dosage: UNK
  14. PRAVASTATIN [Concomitant]
     Dosage: UNK
  15. HUMALOG [Suspect]
     Dosage: UNK, PRN
  16. COREG [Concomitant]
     Dosage: UNK, BID
  17. LISINOPRIL [Concomitant]
     Dosage: UNK
  18. TRAMADOL HCL [Concomitant]
     Dosage: UNK

REACTIONS (7)
  - WRONG DRUG ADMINISTERED [None]
  - FATIGUE [None]
  - CORONARY ARTERY OCCLUSION [None]
  - INJECTION SITE PAIN [None]
  - MYOCARDIAL INFARCTION [None]
  - ADVERSE REACTION [None]
  - CHEST DISCOMFORT [None]
